FAERS Safety Report 5238158-7 (Version None)
Quarter: 2007Q1

REPORT INFORMATION
  Report Type: 
  Country: None (occurrence: None)
  Receive Date: 20070215
  Receipt Date: 20070207
  Transmission Date: 20070707
  Serious: Yes (Other)
  Sender: FDA-Public Use
  Company Number: CH-JNJFOC-20070202832

PATIENT
  Age: 4 Year
  Sex: Male

DRUGS (2)
  1. RISPERDAL [Suspect]
     Indication: ATTENTION DEFICIT/HYPERACTIVITY DISORDER
     Route: 048
  2. RISPERDAL [Suspect]
     Indication: AUTISM
     Route: 048

REACTIONS (4)
  - CONFUSIONAL STATE [None]
  - DIPLOPIA [None]
  - NERVOUSNESS [None]
  - STEREOTYPY [None]
